FAERS Safety Report 4395267-2 (Version None)
Quarter: 2004Q3

REPORT INFORMATION
  Report Type: 
  Country: None (occurrence: None)
  Receive Date: 20040706
  Receipt Date: 20040622
  Transmission Date: 20050211
  Serious: Yes (Hospitalization)
  Sender: FDA-Public Use
  Company Number: 2004220677SE

PATIENT
  Age: 42 Year
  Sex: Female

DRUGS (4)
  1. PREDNISOLONE [Suspect]
     Dosage: 5 MG, 10 TALETS EVERY 5 DAYS, ORAL
     Route: 048
     Dates: start: 20010520, end: 20010529
  2. VALTREX [Suspect]
     Dosage: 500 MG, 6 TABLETS EVERY 6 DAYS, ORAL
     Route: 048
     Dates: start: 20010520, end: 20010529
  3. COZAAR [Concomitant]
  4. PREMARIN A (ESTROGENS CONJUGATED) [Concomitant]

REACTIONS (28)
  - ARRHYTHMIA [None]
  - BEDRIDDEN [None]
  - BLOOD PRESSURE FLUCTUATION [None]
  - CARDIAC DISORDER [None]
  - CHEST DISCOMFORT [None]
  - CONTUSION [None]
  - DEAFNESS [None]
  - DISCOMFORT [None]
  - DIZZINESS [None]
  - EYE PAIN [None]
  - FATIGUE [None]
  - GENERAL PHYSICAL HEALTH DETERIORATION [None]
  - HEADACHE [None]
  - HYPERSOMNIA [None]
  - HYPERTENSION [None]
  - IMPAIRED WORK ABILITY [None]
  - INAPPROPRIATE AFFECT [None]
  - INSOMNIA [None]
  - MOOD ALTERED [None]
  - PAIN IN EXTREMITY [None]
  - RASH GENERALISED [None]
  - SENSORY DISTURBANCE [None]
  - SKIN ATROPHY [None]
  - SKIN FRAGILITY [None]
  - STRESS SYMPTOMS [None]
  - TINNITUS [None]
  - TREMOR [None]
  - WEIGHT DECREASED [None]
